FAERS Safety Report 8028272-5 (Version None)
Quarter: 2012Q1

REPORT INFORMATION
  Report Type: 
  Country: None (occurrence: None)
  Receive Date: 20120106
  Receipt Date: 20111227
  Transmission Date: 20120608
  Serious: Yes (Hospitalization)
  Sender: FDA-Public Use
  Company Number: US-UCBSA-042781

PATIENT
  Age: 20 Year
  Sex: Female
  Weight: 63.8 kg

DRUGS (10)
  1. MULTI-VITAMIN [Concomitant]
     Dosage: 1 TAB
     Route: 048
  2. OXYCODONE HCL [Concomitant]
     Indication: PAIN
     Route: 048
  3. DILAUDID [Concomitant]
     Indication: PAIN
     Route: 048
  4. QUETIAPINE [Concomitant]
     Dosage: 200 MG
     Route: 048
  5. CERTOLIZUMAB PEGOL [Suspect]
     Indication: CROHN'S DISEASE
     Route: 058
     Dates: start: 20110104
  6. METHOTREXATE [Concomitant]
     Indication: CROHN'S DISEASE
     Dates: start: 20100326
  7. QUETIAPINE [Concomitant]
     Dosage: 200 MG
     Route: 048
  8. RETIN-A [Concomitant]
     Indication: VULVAL DISORDER
     Dosage: 0.5 %
     Route: 061
  9. QUETIAPINE [Concomitant]
     Indication: DEPRESSION
     Route: 048
  10. QUETIAPINE [Concomitant]
     Indication: BIPOLAR DISORDER
     Route: 048

REACTIONS (3)
  - ANAL ABSCESS [None]
  - CROHN'S DISEASE [None]
  - INTESTINAL OBSTRUCTION [None]
